FAERS Safety Report 22128927 (Version 5)
Quarter: 2023Q2

REPORT INFORMATION
  Report Type: Report from Study
  Country: CL (occurrence: CL)
  Receive Date: 20230323
  Receipt Date: 20230426
  Transmission Date: 20230722
  Serious: Yes (Other)
  Sender: FDA-Public Use
  Company Number: CL-002147023-NVSC2023CL063237

PATIENT
  Age: 49 Year
  Sex: Female

DRUGS (6)
  1. LETROZOLE [Suspect]
     Active Substance: LETROZOLE
     Indication: Breast cancer stage IV
     Dosage: 600 MG (D1-D21 EVERY 28 DAYS)
     Route: 065
     Dates: start: 20221209
  2. LETROZOLE [Suspect]
     Active Substance: LETROZOLE
     Dosage: UNK
     Route: 065
     Dates: start: 20221209
  3. KISQALI [Suspect]
     Active Substance: RIBOCICLIB
     Indication: Breast cancer
     Dosage: 600 MG, QD
     Route: 048
     Dates: start: 20230322
  4. KISQALI [Suspect]
     Active Substance: RIBOCICLIB
     Dosage: 600 MG, QD
     Route: 048
     Dates: start: 20230322
  5. KISQALI [Suspect]
     Active Substance: RIBOCICLIB
     Dosage: UNK
     Route: 065
     Dates: start: 20230419
  6. D CALCIUM [Concomitant]
     Indication: Product used for unknown indication
     Dosage: UNK
     Route: 065
     Dates: start: 20221209

REACTIONS (8)
  - Liver injury [Unknown]
  - Metastases to liver [Unknown]
  - Metastases to bone [Unknown]
  - Inflammation [Unknown]
  - Dyslipidaemia [Unknown]
  - Lymphadenopathy mediastinal [Unknown]
  - Nasopharyngitis [Unknown]
  - Oropharyngeal pain [Unknown]
